FAERS Safety Report 15458380 (Version 1)
Quarter: 2018Q4

REPORT INFORMATION
  Report Type: Spontaneous
  Country: FR (occurrence: FR)
  Receive Date: 20181003
  Receipt Date: 20181003
  Transmission Date: 20190204
  Serious: Yes (Hospitalization, Other)
  Sender: FDA-Public Use
  Company Number: FR-ZYDUS-027771

PATIENT
  Age: 31 Year
  Sex: Female

DRUGS (11)
  1. PARACETAMOL [Suspect]
     Active Substance: ACETAMINOPHEN
     Indication: PRODUCT USED FOR UNKNOWN INDICATION
     Dosage: ()
  2. CETIRIZINE [Suspect]
     Active Substance: CETIRIZINE HYDROCHLORIDE
     Indication: SUICIDAL BEHAVIOUR
     Route: 065
  3. BROMAZEPAM [Suspect]
     Active Substance: BROMAZEPAM
     Indication: SUICIDAL BEHAVIOUR
  4. PARACETAMOL [Suspect]
     Active Substance: ACETAMINOPHEN
     Indication: PRODUCT USED FOR UNKNOWN INDICATION
     Dosage: ()
  5. ZOLPIDEM TARTRATE. [Suspect]
     Active Substance: ZOLPIDEM TARTRATE
     Indication: SUICIDAL BEHAVIOUR
  6. TRAMADOL. [Suspect]
     Active Substance: TRAMADOL
     Indication: SUICIDAL BEHAVIOUR
  7. BROMAZEPAM [Suspect]
     Active Substance: BROMAZEPAM
     Indication: PRODUCT USED FOR UNKNOWN INDICATION
  8. TRAMADOL. [Suspect]
     Active Substance: TRAMADOL
     Indication: PRODUCT USED FOR UNKNOWN INDICATION
  9. TRAMADOL. [Suspect]
     Active Substance: TRAMADOL
     Indication: PRODUCT USED FOR UNKNOWN INDICATION
  10. CETIRIZINE [Suspect]
     Active Substance: CETIRIZINE HYDROCHLORIDE
     Indication: OFF LABEL USE
     Route: 065
  11. PARACETAMOL [Suspect]
     Active Substance: ACETAMINOPHEN
     Indication: SUICIDAL BEHAVIOUR
     Dosage: ()

REACTIONS (5)
  - Off label use [Unknown]
  - Drug abuse [Unknown]
  - Suicide attempt [Unknown]
  - Hepatic necrosis [Unknown]
  - Drug-induced liver injury [Unknown]
